FAERS Safety Report 9885314 (Version 1)
Quarter: 2014Q1

REPORT INFORMATION
  Report Type: Spontaneous
  Country: BR (occurrence: BR)
  Receive Date: 20140210
  Receipt Date: 20140210
  Transmission Date: 20141002
  Serious: Yes (Other)
  Sender: FDA-Public Use
  Company Number: PHHY2014BR014342

PATIENT
  Sex: Female
  Weight: 56 kg

DRUGS (1)
  1. LOTENSIN [Suspect]
     Indication: HYPERTENSION
     Dosage: 1 DF (5 MG), DAILY
     Route: 048

REACTIONS (9)
  - Nephrolithiasis [Unknown]
  - Osteoporosis [Recovering/Resolving]
  - Blood cholesterol increased [Recovered/Resolved]
  - Blood triglycerides increased [Recovered/Resolved]
  - Nervousness [Recovered/Resolved]
  - Crying [Recovered/Resolved]
  - Tooth fracture [Recovered/Resolved]
  - Decreased appetite [Recovered/Resolved]
  - Dizziness [Recovered/Resolved]
